FAERS Safety Report 7375194-9 (Version None)
Quarter: 2011Q1

REPORT INFORMATION
  Report Type: 
  Country: None (occurrence: None)
  Receive Date: 20110325
  Receipt Date: 20110318
  Transmission Date: 20110831
  Serious: Yes (Death, Hospitalization)
  Sender: FDA-Public Use
  Company Number: CZ-ROCHE-766223

PATIENT
  Sex: Female

DRUGS (13)
  1. VEROSPIRON [Concomitant]
     Indication: HYPERTENSION
  2. ANOPYRIN [Concomitant]
     Dosage: 100MG 1X1
  3. BEVACIZUMAB [Suspect]
     Route: 042
     Dates: start: 20110224, end: 20110315
  4. LOKREN [Concomitant]
     Indication: HYPERTENSION
  5. XELODA [Concomitant]
     Dates: start: 20110224, end: 20110315
  6. IRINOTECAN HYDROCHLORIDE [Concomitant]
     Dates: start: 20110224, end: 20110315
  7. BEVACIZUMAB [Suspect]
     Dosage: TREATMENT INTERRUPTED
     Route: 042
     Dates: start: 20081216, end: 20090105
  8. BEVACIZUMAB [Suspect]
     Route: 042
     Dates: start: 20090506, end: 20090730
  9. MAGNESIUM LACTATE [Concomitant]
  10. LOZAP H [Concomitant]
     Indication: HYPERTENSION
  11. FLAVOBION [Concomitant]
  12. BEVACIZUMAB [Suspect]
     Route: 042
     Dates: start: 20080604
  13. BEVACIZUMAB [Suspect]
     Route: 042
     Dates: start: 20090819, end: 20100901

REACTIONS (6)
  - DIARRHOEA [None]
  - CIRCULATORY COLLAPSE [None]
  - VOMITING [None]
  - SEPSIS [None]
  - DECREASED APPETITE [None]
  - ILEUS [None]
